FAERS Safety Report 8727562 (Version 3)
Quarter: 2013Q1

REPORT INFORMATION
  Report Type: Spontaneous
  Country: FR (occurrence: None)
  Receive Date: 20120730
  Receipt Date: 20130211
  Transmission Date: 20140127
  Serious: Yes (Hospitalization)
  Sender: FDA-Public Use
  Company Number: DKLU1077942

PATIENT
  Age: 13 Year
  Sex: Male
  Weight: 76 kg

DRUGS (3)
  1. ONFI [Suspect]
     Indication: EPILEPSY
     Dosage: 10 MG MILLIGRAM(S), 3 IN 1 D, ORAL
     Route: 048
  2. TRILEPTAL [Suspect]
     Indication: EPILEPSY
     Dosage: 2 IN 1 D, ORAL
     Dates: end: 20120706
  3. LAMOTRIGINE (LAMOTRIGINE) [Suspect]
     Indication: EPILEPSY
     Dosage: 2 IN 1 D, ORAL
     Route: 048

REACTIONS (6)
  - Cholestasis [None]
  - Cholangitis [None]
  - Renal failure [None]
  - Dysarthria [None]
  - Bronchitis [None]
  - Heart rate increased [None]
